FAERS Safety Report 5796615-9 (Version None)
Quarter: 2008Q3

REPORT INFORMATION
  Report Type: 
  Country: None (occurrence: None)
  Receive Date: 20080701
  Receipt Date: 20080619
  Transmission Date: 20090109
  Serious: Yes (Death, Hospitalization)
  Sender: FDA-Public Use
  Company Number: JP-ROCHE-568753

PATIENT
  Age: 33 Month
  Sex: Male
  Weight: 13 kg

DRUGS (4)
  1. TAMIFLU [Suspect]
     Dosage: FORM: DRY SYRUP. ONE DOSE GIVEN; 2 MG/KG.
     Route: 065
  2. CYPROHEPTADINE HCL [Concomitant]
     Dosage: ONE DOSE GIVEN.
  3. CARBOCYSTEINE [Concomitant]
     Dosage: ONE DOSE GIVEN.
  4. TIPEPIDINE HIBENZATE [Concomitant]
     Dosage: ONE DOSE GIVEN. DRUG NAME: TIPEPIDINE HIBENZOATE.

REACTIONS (2)
  - CARDIO-RESPIRATORY ARREST [None]
  - HEADACHE [None]
